FAERS Safety Report 6668827-3 (Version None)
Quarter: 2010Q2

REPORT INFORMATION
  Report Type: 
  Country: None (occurrence: None)
  Receive Date: 20100406
  Receipt Date: 20100330
  Transmission Date: 20101027
  Serious: Yes (Death, Life-Threatening, Hospitalization)
  Sender: FDA-Public Use
  Company Number: JP-BAYER-200810909BYL

PATIENT
  Age: 71 Year
  Sex: Male
  Weight: 45 kg

DRUGS (14)
  1. NEXAVAR [Suspect]
     Indication: RENAL CELL CARCINOMA
     Dosage: TOTAL DAILY DOSE: 400 MG  UNIT DOSE: 200 MG
     Route: 048
     Dates: start: 20080401, end: 20080404
  2. CARVISKEN [Concomitant]
     Route: 048
     Dates: start: 20080401, end: 20080409
  3. SELBEX [Concomitant]
     Route: 048
     Dates: start: 20080401, end: 20080409
  4. VOLTAREN [Concomitant]
     Route: 048
     Dates: start: 20080401, end: 20080409
  5. LASIX [Concomitant]
     Route: 048
     Dates: start: 20080401, end: 20080409
  6. HACHIAZULE [Concomitant]
     Route: 048
     Dates: start: 20080401, end: 20080404
  7. DECADRON [Concomitant]
     Route: 048
     Dates: start: 20080405, end: 20080410
  8. DECADRON [Concomitant]
     Route: 048
     Dates: start: 20080401, end: 20080409
  9. FAMOTIDINE [Concomitant]
     Indication: PROPHYLAXIS AGAINST GASTROINTESTINAL ULCER
     Route: 048
     Dates: start: 20080401, end: 20080409
  10. NEO-MINOPHAGEN C [Concomitant]
     Route: 042
     Dates: start: 20080405, end: 20080410
  11. FAMOTIDINE [Concomitant]
     Indication: PROPHYLAXIS AGAINST GASTROINTESTINAL ULCER
     Route: 042
     Dates: start: 20080405, end: 20080410
  12. LASIX [Concomitant]
     Route: 042
     Dates: start: 20080405, end: 20080407
  13. VASOLAN [Concomitant]
     Route: 042
     Dates: start: 20080407, end: 20080407
  14. SERENACE [Concomitant]
     Route: 042
     Dates: start: 20080410, end: 20080410

REACTIONS (5)
  - BRONCHIAL HAEMORRHAGE [None]
  - DEHYDRATION [None]
  - HYPERKALAEMIA [None]
  - PLEURAL HAEMORRHAGE [None]
  - PNEUMONIA [None]
